FAERS Safety Report 7683890-9 (Version None)
Quarter: 2011Q3

REPORT INFORMATION
  Report Type: 
  Country: None (occurrence: None)
  Receive Date: 20110815
  Receipt Date: 20110804
  Transmission Date: 20111222
  Serious: Yes (Hospitalization)
  Sender: FDA-Public Use
  Company Number: DE-JNJFOC-20110711070

PATIENT
  Sex: Male
  Weight: 60 kg

DRUGS (5)
  1. DICLOFENAC SODIUM [Concomitant]
     Indication: ANALGESIC THERAPY
     Dates: start: 20090807, end: 20090812
  2. PANTOPRAZOLE [Concomitant]
     Indication: PROPHYLAXIS AGAINST GASTROINTESTINAL ULCER
     Dates: start: 20090806
  3. XARELTO [Suspect]
     Route: 048
  4. XARELTO [Suspect]
     Indication: THROMBOSIS PROPHYLAXIS
     Route: 048
     Dates: start: 20090806, end: 20090815
  5. NOVALGIN [Concomitant]
     Indication: ANALGESIC THERAPY
     Dates: start: 20090807

REACTIONS (2)
  - HAEMOGLOBIN DECREASED [None]
  - CHOLECYSTITIS [None]
